FAERS Safety Report 8760234 (Version 2)
Quarter: 2013Q1

REPORT INFORMATION
  Report Type: Spontaneous
  Country: US (occurrence: None)
  Receive Date: 20120820
  Receipt Date: 20130128
  Transmission Date: 20140127
  Serious: Yes (Other)
  Sender: FDA-Public Use
  Company Number: JPI-P-023522

PATIENT
  Age: 25 Year
  Sex: Female

DRUGS (1)
  1. XYREM [Suspect]
     Indication: NARCOLEPSY
     Dosage: ( GM (4.5 GM, 2 IN 1 D), ORAL STOPPED
     Route: 048
     Dates: start: 20120717

REACTIONS (1)
  - Victim of sexual abuse [None]
